FAERS Safety Report 26099632 (Version 1)
Quarter: 2025Q4

REPORT INFORMATION
  Report Type: Spontaneous
  Country: EU (occurrence: EU)
  Receive Date: 20251128
  Receipt Date: 20251128
  Transmission Date: 20260118
  Serious: Yes (Death, Congenital Anomaly, Other)
  Sender: ANI
  Company Number: None

PATIENT
  Sex: Female
  Weight: 2.8 kg

DRUGS (1)
  1. CANDESARTAN CILEXETIL [Suspect]
     Active Substance: CANDESARTAN CILEXETIL
     Indication: Product used for unknown indication
     Route: 064
     Dates: start: 20231020, end: 202405

REACTIONS (7)
  - Pulmonary hypoplasia [Fatal]
  - Congenital musculoskeletal disorder of skull [Fatal]
  - Congenital cystic kidney disease [Fatal]
  - Autosomal chromosome anomaly [Fatal]
  - Death neonatal [Fatal]
  - Premature baby [Unknown]
  - Foetal exposure during pregnancy [Unknown]
